FAERS Safety Report 7571187-7 (Version None)
Quarter: 2011Q2

REPORT INFORMATION
  Report Type: 
  Country: None (occurrence: None)
  Receive Date: 20110624
  Receipt Date: 20110613
  Transmission Date: 20111010
  Serious: Yes (Hospitalization, Disabling, Other)
  Sender: FDA-Public Use
  Company Number: US-ELI_LILLY_AND_COMPANY-US201106004561

PATIENT
  Sex: Male

DRUGS (1)
  1. HUMALOG [Suspect]
     Indication: DIABETES MELLITUS
     Dosage: 20 U, BID

REACTIONS (7)
  - RENAL TRANSPLANT [None]
  - HEARING IMPAIRED [None]
  - INCORRECT DOSE ADMINISTERED [None]
  - ASTHMA [None]
  - ARTHRITIS [None]
  - HYPERSENSITIVITY [None]
  - BLINDNESS [None]
